FAERS Safety Report 7994314-6 (Version None)
Quarter: 2011Q4

REPORT INFORMATION
  Report Type: 
  Country: None (occurrence: None)
  Receive Date: 20111217
  Receipt Date: 20111217
  Transmission Date: 20120403
  Serious: No
  Sender: FDA-Public Use
  Company Number: None

PATIENT
  Age: 42 Year
  Sex: Female

DRUGS (2)
  1. RIBAVIRIN [Suspect]
     Indication: HEPATITIS C
     Dosage: 500MG Q 12H PO
     Route: 048
     Dates: start: 20110711, end: 20111215
  2. PEGASYS [Suspect]
     Indication: HEPATITIS C
     Dosage: 190MCG WEEKLY SQ
     Route: 058
     Dates: start: 20110711, end: 20111215

REACTIONS (7)
  - DRY SKIN [None]
  - EYE IRRITATION [None]
  - CONDITION AGGRAVATED [None]
  - BLINDNESS UNILATERAL [None]
  - RETINOPATHY [None]
  - EYELID DISORDER [None]
  - DRY EYE [None]
